FAERS Safety Report 5013896-X (Version None)
Quarter: 2006Q2

REPORT INFORMATION
  Report Type: 
  Country: None (occurrence: None)
  Receive Date: 20060526
  Receipt Date: 20060526
  Transmission Date: 20061013
  Serious: Yes (Hospitalization)
  Sender: FDA-Public Use
  Company Number: None

PATIENT
  Age: 22 Year
  Sex: Male
  Weight: 65 kg

DRUGS (3)
  1. TELITHROMYCIN    400 MG     SANOFI-AVENTIS [Suspect]
     Indication: PHARYNGITIS
     Dosage: 800 MG   DAILY  PO
     Route: 048
     Dates: start: 20060501, end: 20060502
  2. TELITHROMYCIN    400 MG     SANOFI-AVENTIS [Suspect]
     Indication: TONSILLITIS
     Dosage: 800 MG   DAILY  PO
     Route: 048
     Dates: start: 20060501, end: 20060502
  3. MERCAPTOPURINE [Suspect]
     Indication: CROHN'S DISEASE
     Dosage: 100 MG   DAILY  PO   (DURATION: ^YEARS^)
     Route: 048

REACTIONS (3)
  - INFECTIOUS MONONUCLEOSIS [None]
  - LIVER FUNCTION TEST ABNORMAL [None]
  - PYREXIA [None]
